FAERS Safety Report 7773332-7 (Version None)
Quarter: 2011Q3

REPORT INFORMATION
  Report Type: 
  Country: None (occurrence: None)
  Receive Date: 20110922
  Receipt Date: 20110912
  Transmission Date: 20111222
  Serious: Yes (Disabling)
  Sender: FDA-Public Use
  Company Number: CH-US-EMD SERONO, INC.-7070095

PATIENT
  Sex: Female
  Weight: 66 kg

DRUGS (10)
  1. NEURONTIN [Concomitant]
     Route: 048
     Dates: start: 20101001
  2. EFFEXOR [Concomitant]
     Route: 048
     Dates: start: 20060101
  3. FEMARA [Concomitant]
     Route: 048
     Dates: start: 20101001
  4. MST RETARD [Concomitant]
     Route: 048
     Dates: start: 20101001
  5. REBIF [Suspect]
     Indication: MULTIPLE SCLEROSIS
     Route: 058
     Dates: start: 20000101
  6. ZOMETA [Concomitant]
     Route: 042
  7. MORPHINE [Concomitant]
     Dosage: 20 TO 30 DROPS GREATER THAN 6 TIMES PER DAY
     Route: 048
  8. MODASOMIL [Concomitant]
     Route: 048
     Dates: start: 20070101
  9. ATARAX [Concomitant]
     Dates: start: 20101001
  10. ZOLDORM [Concomitant]
     Route: 048

REACTIONS (1)
  - METASTASES TO BONE [None]
